FAERS Safety Report 10068449 (Version 1)
Quarter: 2014Q2

REPORT INFORMATION
  Report Type: Spontaneous
  Country: DE (occurrence: DE)
  Receive Date: 20140409
  Receipt Date: 20140409
  Transmission Date: 20141212
  Serious: Yes (Other)
  Sender: FDA-Public Use
  Company Number: DE-TEVA-474554GER

PATIENT
  Sex: Female

DRUGS (1)
  1. COPAXONE [Suspect]

REACTIONS (1)
  - Injection site necrosis [Not Recovered/Not Resolved]
